FAERS Safety Report 26128252 (Version 1)
Quarter: 2025Q4

REPORT INFORMATION
  Report Type: Spontaneous
  Country: EU (occurrence: EU)
  Receive Date: 20251207
  Receipt Date: 20251207
  Transmission Date: 20260118
  Serious: Yes (Other)
  Sender: ASTELLAS
  Company Number: EU-ASTELLAS-2025-AER-065909

PATIENT
  Age: 69 Year
  Sex: Female

DRUGS (2)
  1. XOSPATA [Suspect]
     Active Substance: GILTERITINIB
     Indication: Acute myeloid leukaemia recurrent
     Route: 065
     Dates: start: 202401, end: 2024
  2. XOSPATA [Suspect]
     Active Substance: GILTERITINIB
     Dosage: REDUCED DOSE
     Route: 065
     Dates: start: 2024, end: 2024

REACTIONS (4)
  - Pseudomonal sepsis [Unknown]
  - Differentiation syndrome [Unknown]
  - Acute lymphocytic leukaemia refractory [Unknown]
  - Cellulitis [Unknown]

NARRATIVE: CASE EVENT DATE: 20240101
